FAERS Safety Report 5330482-2 (Version None)
Quarter: 2007Q2

REPORT INFORMATION
  Report Type: 
  Country: None (occurrence: None)
  Receive Date: 20070516
  Receipt Date: 20070430
  Transmission Date: 20071010
  Serious: Yes (Other)
  Sender: FDA-Public Use
  Company Number: 6032800

PATIENT
  Age: 63 Year
  Sex: Male

DRUGS (1)
  1. WARFARIN SODIUM [Suspect]
     Indication: THROMBOSIS PROPHYLAXIS
     Dosage: DAILY DOSE

REACTIONS (9)
  - ASTHENIA [None]
  - COAGULATION TEST ABNORMAL [None]
  - HAEMATOMA [None]
  - HYPOAESTHESIA [None]
  - INTERNATIONAL NORMALISED RATIO INCREASED [None]
  - MUSCULAR WEAKNESS [None]
  - NEUROPATHY [None]
  - PARAESTHESIA [None]
  - TENDERNESS [None]
